FAERS Safety Report 18750086 (Version 4)
Quarter: 2021Q1

REPORT INFORMATION
  Report Type: Spontaneous
  Country: US (occurrence: US)
  Receive Date: 20210118
  Receipt Date: 20210225
  Transmission Date: 20210419
  Serious: Yes (Other)
  Sender: FDA-Public Use
  Company Number: US-ABBVIE-21K-163-3731697-00

PATIENT

DRUGS (1)
  1. RINVOQ [Suspect]
     Active Substance: UPADACITINIB
     Indication: PRODUCT USED FOR UNKNOWN INDICATION
     Route: 048

REACTIONS (15)
  - Knee arthroplasty [Unknown]
  - Spinal stenosis [Unknown]
  - Joint injury [Unknown]
  - Rotator cuff syndrome [Unknown]
  - Ejection fraction abnormal [Unknown]
  - Cartilage injury [Unknown]
  - Bradycardia [Not Recovered/Not Resolved]
  - Frustration tolerance decreased [Unknown]
  - Foot operation [Unknown]
  - Blood pressure decreased [Unknown]
  - Osteoarthritis [Unknown]
  - Pain [Unknown]
  - Rheumatoid arthritis [Unknown]
  - Complication associated with device [Recovering/Resolving]
  - Asthenia [Not Recovered/Not Resolved]

NARRATIVE: CASE EVENT DATE: 2018
